FAERS Safety Report 10204942 (Version 1)
Quarter: 2014Q2

REPORT INFORMATION
  Report Type: Spontaneous
  Country: US (occurrence: None)
  Receive Date: 20140527
  Receipt Date: 20140527
  Transmission Date: 20141212
  Serious: Yes (Disabling)
  Sender: FDA-Public Use
  Company Number: None

PATIENT
  Age: 53 Year
  Sex: Female

DRUGS (1)
  1. ADVAIR DISKUS 250/50 GLAXOSMITHKLINE [Suspect]
     Indication: RESPIRATORY TRACT INFLAMMATION
     Dosage: 1 PUFF, TWICE DAILY, INHALATION
     Route: 055
     Dates: start: 20140320, end: 20140430

REACTIONS (4)
  - Myalgia [None]
  - Pain [None]
  - Muscle spasms [None]
  - Insomnia [None]
